FAERS Safety Report 9493436 (Version 1)
Quarter: 2013Q3

REPORT INFORMATION
  Report Type: Spontaneous
  Country: IT (occurrence: IT)
  Receive Date: 20130902
  Receipt Date: 20130902
  Transmission Date: 20140515
  Serious: Yes (Other)
  Sender: FDA-Public Use
  Company Number: IT-PFIZER INC-2013250270

PATIENT
  Age: 25 Year
  Sex: Female

DRUGS (3)
  1. ZOLOFT [Suspect]
     Dosage: 10 DF, TOTAL
     Route: 048
  2. LAMICTAL [Suspect]
     Dosage: 360 MG, TOTAL
     Route: 048
  3. LITHIUM [Concomitant]
     Dosage: UNK

REACTIONS (2)
  - Poisoning [Recovered/Resolved]
  - Drug abuse [Recovered/Resolved]
